FAERS Safety Report 7551697-9 (Version None)
Quarter: 2011Q2

REPORT INFORMATION
  Report Type: 
  Country: None (occurrence: None)
  Receive Date: 20110609
  Receipt Date: 20110524
  Transmission Date: 20111010
  Serious: Yes (Hospitalization, Other)
  Sender: FDA-Public Use
  Company Number: 2011MA006475

PATIENT
  Age: 40 Year
  Sex: Male

DRUGS (1)
  1. LOSARTAN POTASSIUM [Suspect]
     Dosage: 50 MG; QD;

REACTIONS (4)
  - METABOLIC DISORDER [None]
  - HEPATIC ENCEPHALOPATHY [None]
  - AMMONIA INCREASED [None]
  - TOXICITY TO VARIOUS AGENTS [None]
